FAERS Safety Report 11783639 (Version 1)
Quarter: 2015Q4

REPORT INFORMATION
  Report Type: Report from Study
  Country: PR (occurrence: PR)
  Receive Date: 20151127
  Receipt Date: 20151127
  Transmission Date: 20160305
  Serious: Yes (Other)
  Sender: FDA-Public Use
  Company Number: PR-BRISTOL-MYERS SQUIBB COMPANY-14010896

PATIENT
  Age: 30 Year
  Sex: Female

DRUGS (4)
  1. ATAZANAVIR SULFATE [Suspect]
     Active Substance: ATAZANAVIR SULFATE
     Dosage: 400 MG, QD
     Route: 048
     Dates: start: 20071107
  2. ATAZANAVIR SULFATE [Suspect]
     Active Substance: ATAZANAVIR SULFATE
     Indication: HIV INFECTION
     Dosage: 300 MG, QD
     Route: 048
     Dates: start: 20070720, end: 20071107
  3. LAMIVUDINE,ZIDOVUDINE [Suspect]
     Active Substance: LAMIVUDINE\ZIDOVUDINE
     Indication: HIV INFECTION
     Dosage: UNK
     Route: 065
     Dates: start: 20070720
  4. RITONAVIR. [Suspect]
     Active Substance: RITONAVIR
     Indication: HIV INFECTION
     Dosage: 100 MG, QD
     Route: 048
     Dates: start: 20070720

REACTIONS (6)
  - Hypertension [Unknown]
  - Premature delivery [Unknown]
  - Pregnancy [Recovered/Resolved]
  - Oligohydramnios [Unknown]
  - Live birth [Unknown]
  - Caesarean section [Unknown]

NARRATIVE: CASE EVENT DATE: 2007
